FAERS Safety Report 6575481-8 (Version None)
Quarter: 2010Q1

REPORT INFORMATION
  Report Type: 
  Country: None (occurrence: None)
  Receive Date: 20100209
  Receipt Date: 20100128
  Transmission Date: 20100710
  Serious: Yes (Hospitalization)
  Sender: FDA-Public Use
  Company Number: FR-PFIZER INC-2010013637

PATIENT
  Age: 70 Year
  Sex: Female

DRUGS (12)
  1. ATARAX [Suspect]
     Dosage: 100 MG, DAILY
     Route: 048
     Dates: end: 20080914
  2. PRAZEPAM [Suspect]
     Dosage: 40 MG, 3X/DAY
     Route: 048
  3. PRAZEPAM [Suspect]
     Dosage: 20 MG, UNK
     Route: 048
  4. PROZAC [Suspect]
     Dosage: 20 MG, DAILY
     Route: 048
     Dates: end: 20080914
  5. ANAFRANIL [Suspect]
     Dosage: 75 MG, UNK
     Route: 048
  6. COLCHIMAX [Suspect]
     Dosage: 1 DF, 1X/DAY
     Route: 048
     Dates: end: 20080914
  7. DEPAMIDE [Concomitant]
     Dosage: 300 MG, 3X/DAY
     Route: 048
  8. LEVOTHYROXINE SODIUM [Concomitant]
     Dosage: 150 UG, DAILY
     Route: 048
  9. VALNOCTAMIDE [Concomitant]
     Dosage: 0.5 MG, DAILY
     Route: 048
  10. SPAGULAX [Concomitant]
     Dosage: 1 DF, 4X/DAY
     Route: 048
  11. TRANSIPEG [Concomitant]
     Dosage: 1 DF, 2X/DAY
     Route: 048
  12. MOVICOL [Concomitant]
     Dosage: 1 DF, 1X/DAY
     Route: 048

REACTIONS (2)
  - CONFUSIONAL STATE [None]
  - FALL [None]
